FAERS Safety Report 6614081-8 (Version None)
Quarter: 2010Q1

REPORT INFORMATION
  Report Type: 
  Country: None (occurrence: None)
  Receive Date: 20100303
  Receipt Date: 20100303
  Transmission Date: 20100710
  Serious: Yes (Hospitalization)
  Sender: FDA-Public Use
  Company Number: None

PATIENT
  Age: 80 Year
  Sex: Male
  Weight: 113.3993 kg

DRUGS (2)
  1. CARDIZEM [Suspect]
     Indication: BLOOD CHOLESTEROL
     Dosage: ONE CAPSULE DAILY PO
     Route: 048
     Dates: start: 20091026, end: 20091104
  2. NORVASC [Suspect]
     Indication: BLOOD CHOLESTEROL
     Dosage: ONE TABLET DAILY PO
     Route: 048
     Dates: start: 20091127, end: 20091205

REACTIONS (7)
  - COMMUNICATION DISORDER [None]
  - DIZZINESS [None]
  - HEART RATE DECREASED [None]
  - HYPERHIDROSIS [None]
  - MOVEMENT DISORDER [None]
  - PALLOR [None]
  - VOMITING [None]
